FAERS Safety Report 5773185-2 (Version None)
Quarter: 2008Q2

REPORT INFORMATION
  Report Type: 
  Country: None (occurrence: None)
  Receive Date: 20080613
  Receipt Date: 20080613
  Transmission Date: 20081010
  Serious: Yes (Disabling)
  Sender: FDA-Public Use
  Company Number: None

PATIENT
  Age: 63 Year
  Sex: Female
  Weight: 63.5036 kg

DRUGS (3)
  1. BENAZEPRIL HYDROCHLORIDE [Suspect]
     Indication: HYPERTENSION
     Dosage: 1 PILL ONCE PER DAY PO
     Route: 048
     Dates: start: 20080215, end: 20080430
  2. AMLODIPINE [Suspect]
     Indication: HYPERTENSION
     Dosage: 1 PILL ONCE PER DAY PO
     Route: 048
     Dates: start: 20080215, end: 20080430
  3. LOTREL [Suspect]

REACTIONS (5)
  - ABNORMAL SENSATION IN EYE [None]
  - BLOOD PRESSURE FLUCTUATION [None]
  - PHARMACEUTICAL PRODUCT COMPLAINT [None]
  - RENAL FAILURE [None]
  - VISUAL DISTURBANCE [None]
